FAERS Safety Report 16954636 (Version 1)
Quarter: 2019Q4

REPORT INFORMATION
  Report Type: Spontaneous
  Country: DE (occurrence: DE)
  Receive Date: 20191024
  Receipt Date: 20191024
  Transmission Date: 20200122
  Serious: Yes (Hospitalization)
  Sender: FDA-Public Use
  Company Number: DE-AUROBINDO-AUR-APL-2019-068319

PATIENT
  Sex: Male

DRUGS (13)
  1. EPLERENONE. [Concomitant]
     Active Substance: EPLERENONE
     Indication: CARDIOVASCULAR DISORDER
  2. RAMIPRIL. [Interacting]
     Active Substance: RAMIPRIL
     Indication: CEREBROVASCULAR DISORDER
  3. NIVOLUMAB [Suspect]
     Active Substance: NIVOLUMAB
     Indication: NON-SMALL CELL LUNG CANCER
     Dosage: 3 MILLIGRAM/KILOGRAM,  2 WEEK, (Q2WK)
     Route: 042
     Dates: start: 20181106
  4. MARCUMAR [Concomitant]
     Active Substance: PHENPROCOUMON
     Indication: CARDIOVASCULAR DISORDER
     Dosage: UNK
     Route: 065
  5. LYRICA [Concomitant]
     Active Substance: PREGABALIN
     Indication: PRODUCT USED FOR UNKNOWN INDICATION
     Dosage: 225 MILLIGRAM
     Route: 065
  6. TILIDIN [Concomitant]
     Active Substance: NALOXONE HYDROCHLORIDE\TILIDINE HYDROCHLORIDE
     Indication: PRODUCT USED FOR UNKNOWN INDICATION
     Dosage: 225 MILLIGRAM
     Route: 065
  7. ZOPICLON [Concomitant]
     Active Substance: ZOPICLONE
     Indication: PRODUCT USED FOR UNKNOWN INDICATION
     Dosage: UNK, PRN
     Route: 065
  8. OMEPRAZOLE. [Concomitant]
     Active Substance: OMEPRAZOLE
     Indication: PRODUCT USED FOR UNKNOWN INDICATION
     Dosage: 40 MILLIGRAM
     Route: 065
  9. RAMIPRIL. [Suspect]
     Active Substance: RAMIPRIL
     Indication: CARDIOVASCULAR DISORDER
     Dosage: 5 MILLIGRAM
     Route: 065
  10. METAMIZOL [Concomitant]
     Active Substance: METAMIZOLE SODIUM
     Indication: PRODUCT USED FOR UNKNOWN INDICATION
     Dosage: 2000 MILLIGRAM
     Route: 065
  11. TORASEMID [Concomitant]
     Active Substance: TORSEMIDE
     Indication: PRODUCT USED FOR UNKNOWN INDICATION
     Dosage: 200 MILLIGRAM
     Route: 065
  12. EPLERENONE. [Concomitant]
     Active Substance: EPLERENONE
     Indication: CEREBROVASCULAR DISORDER
     Dosage: 25 MILLIGRAM
     Route: 065
  13. MARCUMAR [Concomitant]
     Active Substance: PHENPROCOUMON
     Indication: CEREBROVASCULAR DISORDER

REACTIONS (2)
  - Intentional product use issue [Unknown]
  - Bladder neoplasm [Not Recovered/Not Resolved]

NARRATIVE: CASE EVENT DATE: 20190923
